FAERS Safety Report 4772183-5 (Version None)
Quarter: 2005Q3

REPORT INFORMATION
  Report Type: 
  Country: None (occurrence: None)
  Receive Date: 20050919
  Receipt Date: 20041020
  Transmission Date: 20060218
  Serious: Yes (Hospitalization)
  Sender: FDA-Public Use
  Company Number: US-BRISTOL-MYERS SQUIBB COMPANY-12744207

PATIENT
  Sex: Male

DRUGS (1)
  1. DEFINITY [Suspect]
     Dosage: DILUTED BOLUS
     Route: 051

REACTIONS (1)
  - HYPERSENSITIVITY [None]
